FAERS Safety Report 23175584 (Version 1)
Quarter: 2023Q4

REPORT INFORMATION
  Report Type: Report from Study
  Country: US (occurrence: US)
  Receive Date: 20231113
  Receipt Date: 20231113
  Transmission Date: 20240110
  Serious: Yes (Other)
  Sender: FDA-Public Use
  Company Number: US-ABBVIE-5488615

PATIENT
  Age: 67 Year
  Sex: Male
  Weight: 89.357 kg

DRUGS (1)
  1. VENCLEXTA [Suspect]
     Active Substance: VENETOCLAX
     Indication: Pancytopenia
     Dosage: STRENGTH 100 MG
     Route: 048
     Dates: start: 20231030

REACTIONS (2)
  - Lung disorder [Unknown]
  - Infusion [Unknown]

NARRATIVE: CASE EVENT DATE: 20231001
